FAERS Safety Report 23973855 (Version 2)
Quarter: 2024Q3

REPORT INFORMATION
  Report Type: Report from Study
  Country: US (occurrence: US)
  Receive Date: 20240613
  Receipt Date: 20240726
  Transmission Date: 20241017
  Serious: Yes (Other)
  Sender: AIMMUNE
  Company Number: US-AIMMUNE THERAPEUTICS, INC.-2024AIMT00902

PATIENT

DRUGS (2)
  1. VOWST [Suspect]
     Active Substance: DONOR HUMAN STOOL SPORES (ETHANOL TREATED)
     Indication: Clostridium difficile infection
     Dosage: UNIK CAPSULES, AS ORDERED, 4 DAY THERAPY
     Route: 048
     Dates: start: 20230809, end: 202308
  2. VOWST [Suspect]
     Active Substance: DONOR HUMAN STOOL SPORES (ETHANOL TREATED)
     Dosage: UNK CAPSULES, ONCE, LAST DOSE PRIOR EVENT
     Route: 048
     Dates: start: 202308, end: 202308

REACTIONS (7)
  - Bladder cancer [Not Recovered/Not Resolved]
  - Urinary retention [Not Recovered/Not Resolved]
  - Clostridium difficile infection [Not Recovered/Not Resolved]
  - Urinary tract infection [Recovered/Resolved]
  - Abdominal pain upper [Not Recovered/Not Resolved]
  - Prostatomegaly [Not Recovered/Not Resolved]
  - Diarrhoea [Recovered/Resolved]

NARRATIVE: CASE EVENT DATE: 20231201
